FAERS Safety Report 18933529 (Version 2)
Quarter: 2021Q1

REPORT INFORMATION
  Report Type: Spontaneous
  Country: US (occurrence: US)
  Receive Date: 20210224
  Receipt Date: 20210331
  Transmission Date: 20210420
  Serious: Yes (Other)
  Sender: FDA-Public Use
  Company Number: US-SA-2021SA062036

PATIENT
  Age: 15 Year
  Sex: Female

DRUGS (1)
  1. DUPIXENT [Suspect]
     Active Substance: DUPILUMAB
     Indication: DERMATITIS ATOPIC
     Dosage: UNK
     Route: 058
     Dates: start: 20201119, end: 20210114

REACTIONS (6)
  - Hypoaesthesia [Unknown]
  - Groin pain [Unknown]
  - Headache [Unknown]
  - Syncope [Unknown]
  - Paraesthesia [Unknown]
  - Nausea [Unknown]
